FAERS Safety Report 8521715-X (Version None)
Quarter: 2012Q3

REPORT INFORMATION
  Report Type: 
  Country: None (occurrence: None)
  Receive Date: 20120719
  Receipt Date: 20120713
  Transmission Date: 20120928
  Serious: Yes (Other)
  Sender: FDA-Public Use
  Company Number: GXKR2012DE002256

PATIENT
  Age: 26 Year
  Sex: Female

DRUGS (7)
  1. OMEPRAZOLE [Concomitant]
     Indication: GASTROOESOPHAGEAL REFLUX DISEASE
     Dosage: 20 MG, QD, 0.-20.6 GW
     Route: 048
     Dates: start: 20111125, end: 20120419
  2. LEVOTHYROXINE SODIUM [Concomitant]
     Indication: HYPOTHYROIDISM
     Dosage: 75 UG, QD, 0.-20.6 GW
     Route: 048
  3. VENLAFAXINE [Suspect]
     Dosage: UNK MG, UNK
  4. FEMIBION [Concomitant]
     Indication: PROPHYLAXIS OF NEURAL TUBE DEFECT
     Dosage: 0.4 MG, QD, 3.5 -20.6 GW
     Route: 048
  5. VENLAFAXINE [Suspect]
     Indication: ANXIETY DISORDER
     Dosage: 75 MG, QD, 0.-20.6 GW
     Route: 048
     Dates: start: 20111125, end: 20120419
  6. LEVOTHYROXINE SODIUM [Concomitant]
     Dosage: UNK UG, UNK
  7. OMEPRAZOLE [Concomitant]
     Dosage: UNK MG, UNK

REACTIONS (1)
  - OLIGOHYDRAMNIOS [None]
